FAERS Safety Report 9704295 (Version 2)
Quarter: 2013Q4

REPORT INFORMATION
  Report Type: Spontaneous
  Country: US (occurrence: US)
  Receive Date: 20131122
  Receipt Date: 20131122
  Transmission Date: 20140711
  Serious: Yes (Life-Threatening, Hospitalization)
  Sender: FDA-Public Use
  Company Number: US-SA-2013SA109144

PATIENT
  Age: 68 Year
  Sex: Male
  Weight: 80.73 kg

DRUGS (15)
  1. MULTAQ [Suspect]
     Indication: ATRIAL FIBRILLATION
     Dosage: THERAPY END DATE - 18 OR 19-OCT-2013
     Route: 048
     Dates: start: 20131015, end: 20131017
  2. MULTAQ [Suspect]
     Indication: ATRIAL FIBRILLATION
     Dosage: THERAPY END DATE - 18 OR 19-OCT-2013
     Route: 048
     Dates: start: 20131015, end: 20131017
  3. AMLODIPINE [Concomitant]
     Indication: BLOOD PRESSURE
     Route: 048
  4. MAGNESIUM CARBONATE [Concomitant]
     Route: 048
  5. MAGNESIUM CHLORIDE [Concomitant]
     Route: 048
  6. TOPROL XL [Concomitant]
     Indication: BLOOD PRESSURE
     Route: 048
  7. MULTIVITAMINS [Concomitant]
     Route: 048
  8. OMEPRAZOLE [Concomitant]
     Indication: HYPERCHLORHYDRIA
     Route: 048
  9. XARELTO [Concomitant]
     Indication: THROMBOSIS PROPHYLAXIS
     Route: 048
  10. SAW PALMETTO [Concomitant]
     Indication: SUPPLEMENTATION THERAPY
     Route: 048
  11. CIALIS [Concomitant]
     Indication: ERECTILE DYSFUNCTION
     Route: 048
  12. TAMSULOSIN [Concomitant]
     Indication: URINARY INCONTINENCE
     Route: 048
  13. TESTOSTERONE [Concomitant]
     Route: 061
  14. COENZYME Q10 [Concomitant]
     Indication: SUPPLEMENTATION THERAPY
     Route: 048
  15. E-VITAMIN [Concomitant]
     Indication: SUPPLEMENTATION THERAPY
     Dosage: DOSE - 400 INTL_UNIT
     Route: 048

REACTIONS (3)
  - Embolic stroke [Not Recovered/Not Resolved]
  - Disorientation [Not Recovered/Not Resolved]
  - Rash [Recovered/Resolved]
